FAERS Safety Report 6393466-1 (Version None)
Quarter: 2009Q4

REPORT INFORMATION
  Report Type: 
  Country: None (occurrence: None)
  Receive Date: 20091008
  Receipt Date: 20090925
  Transmission Date: 20100525
  Serious: Yes (Other)
  Sender: FDA-Public Use
  Company Number: US-PFIZER INC-2004108657

PATIENT
  Sex: Female

DRUGS (6)
  1. PREMPRO [Suspect]
     Indication: HORMONE REPLACEMENT THERAPY
     Dosage: 0.625/2.5 MG, UNK
     Route: 048
     Dates: start: 19970304, end: 20020101
  2. PREMPHASE 14/14 [Suspect]
     Indication: HORMONE REPLACEMENT THERAPY
     Dosage: UNK
     Dates: start: 19970201
  3. BUMETANIDE [Concomitant]
     Indication: POLYURIA
     Dosage: UNK
     Dates: start: 19880201
  4. VERAPAMIL [Concomitant]
     Indication: HYPERTENSION
     Dosage: UNK
     Dates: start: 19890601
  5. ALDACTONE [Concomitant]
     Indication: POLYURIA
     Dosage: UNK
     Dates: start: 19890601
  6. LISINOPRIL [Concomitant]
     Indication: HYPERTENSION
     Dosage: UNK
     Dates: start: 19980301

REACTIONS (1)
  - BREAST CANCER FEMALE [None]
